FAERS Safety Report 11343551 (Version 1)
Quarter: 2015Q3

REPORT INFORMATION
  Report Type: Report from Study
  Country: US (occurrence: US)
  Receive Date: 20150806
  Receipt Date: 20150806
  Transmission Date: 20151125
  Serious: Yes (Hospitalization, Other)
  Sender: FDA-Public Use
  Company Number: US-AMGEN-USASP2011052462

PATIENT
  Age: 72 Year
  Sex: Female

DRUGS (2)
  1. ASPIRIN. [Suspect]
     Active Substance: ASPIRIN
     Indication: PRODUCT USED FOR UNKNOWN INDICATION
     Dosage: UNK
     Route: 065
  2. ENBREL [Suspect]
     Active Substance: ETANERCEPT
     Indication: RHEUMATOID ARTHRITIS
     Dosage: 25 MG, 2 TIMES/WK
     Route: 065
     Dates: start: 20050516

REACTIONS (6)
  - Contusion [Not Recovered/Not Resolved]
  - Shoulder arthroplasty [Unknown]
  - Rotator cuff syndrome [Unknown]
  - Wrist surgery [Recovered/Resolved]
  - Injection site bruising [Not Recovered/Not Resolved]
  - Rotator cuff repair [Unknown]

NARRATIVE: CASE EVENT DATE: 20050516
